FAERS Safety Report 6814408-8 (Version None)
Quarter: 2010Q3

REPORT INFORMATION
  Report Type: 
  Country: None (occurrence: None)
  Receive Date: 20100702
  Receipt Date: 20100625
  Transmission Date: 20110219
  Serious: Yes (Other)
  Sender: FDA-Public Use
  Company Number: US-BRISTOL-MYERS SQUIBB COMPANY-15167075

PATIENT
  Age: 38 Year
  Sex: Female
  Weight: 107 kg

DRUGS (5)
  1. REYATAZ [Suspect]
     Indication: HIV INFECTION
  2. NORVIR [Suspect]
     Indication: HIV INFECTION
  3. TRICOR [Concomitant]
  4. DULCOLAX [Concomitant]
  5. BUSPIRONE HCL [Concomitant]

REACTIONS (8)
  - DIABETES MELLITUS [None]
  - DIZZINESS [None]
  - DYSPNOEA [None]
  - FACE OEDEMA [None]
  - INFLUENZA LIKE ILLNESS [None]
  - JAUNDICE [None]
  - PARAESTHESIA [None]
  - STOMATITIS [None]
